FAERS Safety Report 24069217 (Version 1)
Quarter: 2024Q3

REPORT INFORMATION
  Report Type: Report from Study
  Country: CL (occurrence: CL)
  Receive Date: 20240710
  Receipt Date: 20240710
  Transmission Date: 20241017
  Serious: No
  Sender: ROCHE
  Company Number: CL-ROCHE-3503192

PATIENT
  Age: 49 Year
  Sex: Female

DRUGS (2)
  1. PHESGO [Suspect]
     Active Substance: HYALURONIDASE-ZZXF\PERTUZUMAB\TRASTUZUMAB
     Indication: HER2 positive breast cancer
     Dosage: DOSE AND FREQUENCY WERE NOT REPORTED
     Route: 065
     Dates: start: 20231121
  2. PACLITAXEL [Concomitant]
     Active Substance: PACLITAXEL
     Dosage: DOSE AND FREQUENCY WERE NOT REPORTED

REACTIONS (2)
  - Diarrhoea [Unknown]
  - Dermatitis [Unknown]
